FAERS Safety Report 5773037-8 (Version None)
Quarter: 2008Q2

REPORT INFORMATION
  Report Type: 
  Country: None (occurrence: None)
  Receive Date: 20080613
  Receipt Date: 20080605
  Transmission Date: 20081010
  Serious: Yes (Disabling, Other)
  Sender: FDA-Public Use
  Company Number: GB-PFIZER INC-2008048168

PATIENT
  Age: 70 Year
  Sex: Male
  Weight: 79.3 kg

DRUGS (2)
  1. CELEBREX [Suspect]
     Route: 048
  2. RAMIPRIL [Concomitant]
     Indication: HYPERTENSION
     Route: 048

REACTIONS (1)
  - EPILEPSY [None]
